FAERS Safety Report 17662221 (Version 1)
Quarter: 2020Q2

REPORT INFORMATION
  Report Type: Spontaneous
  Country: US (occurrence: US)
  Receive Date: 20200413
  Receipt Date: 20200413
  Transmission Date: 20200713
  Serious: Yes (Other)
  Sender: FDA-Public Use
  Company Number: US-UPSHER-SMITH LABORATORIES, LLC-2020USL00186

PATIENT
  Age: 41 Year
  Sex: Male

DRUGS (1)
  1. TESTOSTERONE. [Suspect]
     Active Substance: TESTOSTERONE
     Indication: SUPPLEMENTATION THERAPY
     Dosage: UNK, 1X/WEEK
     Route: 042

REACTIONS (4)
  - Atrioventricular block complete [Recovering/Resolving]
  - Polycythaemia [Unknown]
  - Hepatic function abnormal [Unknown]
  - Myocarditis [Unknown]
